FAERS Safety Report 25283188 (Version 1)
Quarter: 2025Q2

REPORT INFORMATION
  Report Type: Spontaneous
  Country: US (occurrence: US)
  Receive Date: 20250508
  Receipt Date: 20250508
  Transmission Date: 20250716
  Serious: Yes (Other)
  Sender: EXELA PHARMA SCIENCES
  Company Number: US-EXELAPHARMA-2025EXLA00073

PATIENT
  Age: 66 Year
  Sex: Male

DRUGS (2)
  1. BLOXIVERZ [Suspect]
     Active Substance: NEOSTIGMINE METHYLSULFATE
     Indication: Intestinal pseudo-obstruction
     Route: 040
  2. BLOXIVERZ [Suspect]
     Active Substance: NEOSTIGMINE METHYLSULFATE
     Route: 040

REACTIONS (1)
  - Drug ineffective for unapproved indication [Not Recovered/Not Resolved]
